FAERS Safety Report 6254485-9 (Version None)
Quarter: 2009Q3

REPORT INFORMATION
  Report Type: 
  Country: None (occurrence: None)
  Receive Date: 20090701
  Receipt Date: 20090701
  Transmission Date: 20100115
  Serious: No
  Sender: FDA-Public Use
  Company Number: None

PATIENT
  Weight: 89.8122 kg

DRUGS (1)
  1. LIPITOR [Suspect]
     Indication: BLOOD CHOLESTEROL INCREASED
     Dosage: 1 TAB 1 PER DAY PO
     Route: 048
     Dates: start: 20090510, end: 20090620

REACTIONS (2)
  - DEMENTIA ALZHEIMER'S TYPE [None]
  - SUICIDAL IDEATION [None]
